FAERS Safety Report 24368130 (Version 1)
Quarter: 2024Q3

REPORT INFORMATION
  Report Type: Spontaneous
  Country: US (occurrence: US)
  Receive Date: 20240926
  Receipt Date: 20240926
  Transmission Date: 20241016
  Serious: No
  Sender: MCGUFF
  Company Number: US-McGuff Pharmaceuticals, Inc.-2162109

PATIENT
  Age: 68 Year
  Sex: Male
  Weight: 55.909 kg

DRUGS (2)
  1. ASCOR [Suspect]
     Active Substance: ASCORBIC ACID
     Indication: Ultrasound thyroid abnormal
     Dates: start: 20240906, end: 20240906
  2. SYNTHROID [Concomitant]
     Active Substance: LEVOTHYROXINE SODIUM

REACTIONS (3)
  - Burning sensation [Recovered/Resolved]
  - Pain [Recovered/Resolved]
  - Paraesthesia [Recovered/Resolved]

NARRATIVE: CASE EVENT DATE: 20240906
